FAERS Safety Report 13761722 (Version 1)
Quarter: 2017Q3

REPORT INFORMATION
  Report Type: Spontaneous
  Country: FR (occurrence: FR)
  Receive Date: 20170718
  Receipt Date: 20170718
  Transmission Date: 20171127
  Serious: Yes (Hospitalization)
  Sender: FDA-Public Use
  Company Number: FR-ROCHE-1961564

PATIENT
  Sex: Female

DRUGS (3)
  1. OXALIPLATINE [Suspect]
     Active Substance: OXALIPLATIN
     Indication: COLON ADENOMA
     Route: 042
     Dates: start: 20170410, end: 20170410
  2. PALONOSETRON [Suspect]
     Active Substance: PALONOSETRON
     Indication: COLON ADENOMA
     Route: 042
     Dates: start: 20170410, end: 20170410
  3. AVASTIN [Suspect]
     Active Substance: BEVACIZUMAB
     Indication: COLON ADENOMA
     Route: 042
     Dates: start: 20170410, end: 20170410

REACTIONS (1)
  - Anaphylactic reaction [Recovered/Resolved]

NARRATIVE: CASE EVENT DATE: 20170410
